FAERS Safety Report 26218831 (Version 1)
Quarter: 2025Q4

REPORT INFORMATION
  Report Type: Spontaneous
  Country: US (occurrence: US)
  Receive Date: 20251231
  Receipt Date: 20251231
  Transmission Date: 20260118
  Serious: No
  Sender: PFIZER
  Company Number: US-PFIZER INC-PV202500152735

PATIENT
  Age: 23 Year
  Sex: Male

DRUGS (1)
  1. TAFAMIDIS MEGLUMINE [Suspect]
     Active Substance: TAFAMIDIS MEGLUMINE
     Indication: Amyloidosis
     Dosage: 61 MG, DAILY
     Dates: start: 20250214

REACTIONS (3)
  - Weight increased [Recovering/Resolving]
  - Nausea [Recovering/Resolving]
  - Vitreous opacities [Recovering/Resolving]
